FAERS Safety Report 25174132 (Version 2)
Quarter: 2025Q2

REPORT INFORMATION
  Report Type: Spontaneous
  Country: US (occurrence: US)
  Receive Date: 20250408
  Receipt Date: 20250630
  Transmission Date: 20250717
  Serious: No
  Sender: SANOFI AVENTIS
  Company Number: US-SA-2025SA100170

PATIENT
  Age: 47 Year
  Sex: Female

DRUGS (1)
  1. DUPIXENT [Suspect]
     Active Substance: DUPILUMAB
     Indication: Dermatitis atopic
     Dosage: 300 MG, QOW
     Route: 058

REACTIONS (7)
  - Dysphonia [Unknown]
  - Aphthous ulcer [Unknown]
  - Contusion [Unknown]
  - Diarrhoea [Unknown]
  - Nasopharyngitis [Unknown]
  - Oral herpes [Unknown]
  - Aphonia [Unknown]
